FAERS Safety Report 14858937 (Version 5)
Quarter: 2022Q4

REPORT INFORMATION
  Report Type: Spontaneous
  Country: US (occurrence: US)
  Receive Date: 20180508
  Receipt Date: 20221209
  Transmission Date: 20230112
  Serious: Yes (Disabling)
  Sender: FDA-Public Use
  Company Number: US-TEVA-2017-US-831445

PATIENT
  Age: 58 Year
  Sex: Female

DRUGS (30)
  1. DOCETAXEL [Suspect]
     Active Substance: DOCETAXEL
     Indication: Breast cancer female
     Dosage: ADMINSTERED ON 18-OCT-2013(170 MG), 08-NOV-2013(170 MG), 29-NOV-2013(165 MG) AND 20-DEC-2013(165 MG)
     Route: 042
     Dates: start: 20131018, end: 20131220
  2. DOCETAXEL [Suspect]
     Active Substance: DOCETAXEL
     Indication: Breast cancer female
     Route: 065
  3. DOCETAXEL [Suspect]
     Active Substance: DOCETAXEL
     Indication: Breast cancer female
     Dosage: STRENGTH: 80MG/8ML, EVERY THREE WEEKS. ADMINISTERED ON 04-SEP-2013 AND 27-SEP-2013
     Route: 042
     Dates: start: 20130904, end: 20130927
  4. CYTOXAN [Concomitant]
     Active Substance: CYCLOPHOSPHAMIDE
     Indication: Breast cancer female
     Dosage: EVERY 3 WEEKS FOR 6 CYCLES.
     Route: 042
     Dates: start: 20130904, end: 20131220
  5. CYTOXAN [Concomitant]
     Active Substance: CYCLOPHOSPHAMIDE
     Dosage: 1340 MG (600 MG/M2) (OF 20 MG/ML); INTRAVENOUSLY DAILY OVER 30 MIN FOR 1 DAY IN NORMAL SALINE150ML
     Route: 065
     Dates: start: 20131108, end: 20131108
  6. CYTOXAN [Concomitant]
     Active Substance: CYCLOPHOSPHAMIDE
     Dosage: 1340 MG (600 MG/M2) (OF 20 MG/ML); INTRAVENOUSLY DAILY OVER 30 MIN FOR 1 DAY IN NORMAL SALINE150ML
     Route: 065
     Dates: start: 20131129, end: 20131129
  7. CYTOXAN [Concomitant]
     Active Substance: CYCLOPHOSPHAMIDE
     Dosage: 1340 MG (600 MG/M2) (OF 20 MG/ML); INTRAVENOUSLY DAILY OVER 30 MIN FOR 1 DAY IN NORMAL SALINE150ML
     Route: 065
     Dates: start: 20131220, end: 20131220
  8. COZAAR [Concomitant]
     Active Substance: LOSARTAN POTASSIUM
     Indication: Product used for unknown indication
     Dates: start: 2005
  9. HYDROCHLOROTHIAZIDE [Concomitant]
     Active Substance: HYDROCHLOROTHIAZIDE
     Indication: Product used for unknown indication
     Dates: start: 2010
  10. POTASSIUM [Concomitant]
     Active Substance: POTASSIUM
     Indication: Product used for unknown indication
     Dates: start: 2010
  11. CALCIUM [Concomitant]
     Active Substance: CALCIUM
     Indication: Product used for unknown indication
     Dates: start: 2010
  12. VITAMIN D [Concomitant]
     Active Substance: VITAMIN D NOS
     Indication: Product used for unknown indication
     Dates: start: 2010
  13. DYAZIDE [Concomitant]
     Active Substance: HYDROCHLOROTHIAZIDE\TRIAMTERENE
     Indication: Product used for unknown indication
     Dates: start: 2010
  14. AMLODIPINE [Concomitant]
     Active Substance: AMLODIPINE BESYLATE
     Indication: Product used for unknown indication
     Dates: start: 2010
  15. DEXAMETHASONE SODIUM PHOSPHATE [Concomitant]
     Active Substance: DEXAMETHASONE SODIUM PHOSPHATE
     Indication: Product used for unknown indication
     Route: 042
     Dates: start: 20131018, end: 20131018
  16. DEXAMETHASONE SODIUM PHOSPHATE [Concomitant]
     Active Substance: DEXAMETHASONE SODIUM PHOSPHATE
     Route: 042
     Dates: start: 20131108, end: 20131108
  17. DEXAMETHASONE SODIUM PHOSPHATE [Concomitant]
     Active Substance: DEXAMETHASONE SODIUM PHOSPHATE
     Route: 042
     Dates: start: 20131129, end: 20131129
  18. DEXAMETHASONE SODIUM PHOSPHATE [Concomitant]
     Active Substance: DEXAMETHASONE SODIUM PHOSPHATE
     Route: 042
     Dates: start: 20131220, end: 20131220
  19. GRANISETRON HYDROCHLORIDE [Concomitant]
     Active Substance: GRANISETRON HYDROCHLORIDE
     Indication: Product used for unknown indication
     Dosage: INTRAVENOUSLY DAILY INTERMITTENT OVER 20 MIN FOR 1 DAY IN NORMAL SALINE 50ML
     Route: 042
     Dates: start: 20131018, end: 20131018
  20. GRANISETRON HYDROCHLORIDE [Concomitant]
     Active Substance: GRANISETRON HYDROCHLORIDE
     Dosage: INTRAVENOUSLY DAILY INTERMITTENT OVER 20 MIN FOR 1 DAY IN NORMAL SALINE 50ML
     Route: 042
     Dates: start: 20131108, end: 20131108
  21. GRANISETRON HYDROCHLORIDE [Concomitant]
     Active Substance: GRANISETRON HYDROCHLORIDE
     Dosage: INTRAVENOUSLY DAILY INTERMITTENT OVER 20 MIN FOR 1 DAY IN NORMAL SALINE 50ML
     Route: 042
     Dates: start: 20131129, end: 20131129
  22. GRANISETRON HYDROCHLORIDE [Concomitant]
     Active Substance: GRANISETRON HYDROCHLORIDE
     Dosage: INTRAVENOUSLY DAILY INTERMITTENT OVER 20 MIN FOR 1 DAY IN NORMAL SALINE 50ML
     Route: 042
     Dates: start: 20131220, end: 20131220
  23. TRASTUZUMAB [Concomitant]
     Active Substance: TRASTUZUMAB
     Indication: Breast cancer
     Dosage: 640MG (AT 6MG/KG) (OF 21MG/ML) )INTRAVENOUSLY DAILY OVER 30 MIN FOR 1 DAY IN NORMAL SALINE 250ML
     Route: 042
     Dates: start: 20131018, end: 20131018
  24. TRASTUZUMAB [Concomitant]
     Active Substance: TRASTUZUMAB
     Dosage: 640MG (AT 6MG/KG) (OF 21MG/ML) )INTRAVENOUSLY DAILY OVER 30 MIN FOR 1 DAY IN NORMAL SALINE 250ML
     Route: 042
     Dates: start: 20131108, end: 20131108
  25. TRASTUZUMAB [Concomitant]
     Active Substance: TRASTUZUMAB
     Dosage: 640MG (AT 6MG/KG) (OF 21MG/ML) )INTRAVENOUSLY DAILY OVER 30 MIN FOR 1 DAY IN NORMAL SALINE 250ML
     Route: 042
     Dates: start: 20131129, end: 20131129
  26. TRASTUZUMAB [Concomitant]
     Active Substance: TRASTUZUMAB
     Dosage: 640MG (AT 6MG/KG) (OF 21MG/ML) )INTRAVENOUSLY DAILY OVER 30 MIN FOR 1 DAY IN NORMAL SALINE 250ML
     Route: 042
     Dates: start: 20131220, end: 20131220
  27. HEPARIN LOCK FLUSH [Concomitant]
     Active Substance: HEPARIN SODIUM
     Indication: Product used for unknown indication
     Dosage: 5 ML (OF 100 UNITS/ML) INTRAVENOUS ONCE PUSH
     Route: 042
     Dates: start: 20131018, end: 20131018
  28. HEPARIN LOCK FLUSH [Concomitant]
     Active Substance: HEPARIN SODIUM
     Dosage: 5 ML (OF 100 UNITS/ML) INTRAVENOUS ONCE PUSH
     Route: 042
     Dates: start: 20131108, end: 20131108
  29. HEPARIN LOCK FLUSH [Concomitant]
     Active Substance: HEPARIN SODIUM
     Dosage: 5 ML (OF 100 UNITS/ML) INTRAVENOUS ONCE PUSH
     Route: 042
     Dates: start: 20131220, end: 20131220
  30. POTASSIUM CHLORIDE CRYS [Concomitant]
     Indication: Product used for unknown indication
     Dosage: 40 MEQ (OF 20 MEQ) - CONTROLLED RELEASE, ORAL, ONCE
     Route: 048
     Dates: start: 20131108

REACTIONS (4)
  - Alopecia [Not Recovered/Not Resolved]
  - Madarosis [Not Recovered/Not Resolved]
  - Hair texture abnormal [Not Recovered/Not Resolved]
  - Hair colour changes [Not Recovered/Not Resolved]

NARRATIVE: CASE EVENT DATE: 20140601
